FAERS Safety Report 6014712-X (Version None)
Quarter: 2008Q4

REPORT INFORMATION
  Report Type: 
  Country: None (occurrence: None)
  Receive Date: 20081216
  Receipt Date: 20080911
  Transmission Date: 20090506
  Serious: Yes (Other)
  Sender: FDA-Public Use
  Company Number: US-WYE-H06000908

PATIENT
  Sex: Female
  Weight: 74.91 kg

DRUGS (4)
  1. EFFEXOR XR [Suspect]
     Indication: HOT FLUSH
     Dosage: 150 MG 1X PER 1 DAY, ORAL; 150 MG 1X PER 1 DAY, ORAL; 117.5 MG 1X PER 1 DAY, ORAL
     Route: 048
     Dates: start: 20070701, end: 20070101
  2. EFFEXOR XR [Suspect]
     Indication: HOT FLUSH
     Dosage: 150 MG 1X PER 1 DAY, ORAL; 150 MG 1X PER 1 DAY, ORAL; 117.5 MG 1X PER 1 DAY, ORAL
     Route: 048
     Dates: start: 20030101, end: 20070701
  3. EFFEXOR XR [Suspect]
     Indication: HOT FLUSH
     Dosage: 150 MG 1X PER 1 DAY, ORAL; 150 MG 1X PER 1 DAY, ORAL; 117.5 MG 1X PER 1 DAY, ORAL
     Route: 048
     Dates: start: 20070101
  4. PREVACID [Concomitant]

REACTIONS (2)
  - BLOOD PRESSURE INCREASED [None]
  - HEADACHE [None]
